FAERS Safety Report 6272750-6 (Version None)
Quarter: 2009Q3

REPORT INFORMATION
  Report Type: 
  Country: None (occurrence: None)
  Receive Date: 20090716
  Receipt Date: 20090716
  Transmission Date: 20100115
  Serious: Yes (Other)
  Sender: FDA-Public Use
  Company Number: None

PATIENT
  Age: 79 Year
  Sex: Female
  Weight: 68.4932 kg

DRUGS (1)
  1. CIPROFLOXIN (APOTEX) [Suspect]
     Indication: GASTROINTESTINAL INFECTION
     Dosage: 250 MG 1-2X DAY -3 DAYS

REACTIONS (7)
  - ABASIA [None]
  - CONFUSIONAL STATE [None]
  - DIZZINESS [None]
  - HEADACHE [None]
  - TREMOR [None]
  - VISION BLURRED [None]
  - WALKING AID USER [None]
